FAERS Safety Report 6745194-8 (Version None)
Quarter: 2010Q2

REPORT INFORMATION
  Report Type: 
  Country: None (occurrence: None)
  Receive Date: 20100528
  Receipt Date: 20100521
  Transmission Date: 20101027
  Serious: Yes (Hospitalization)
  Sender: FDA-Public Use
  Company Number: US-BIOGENIDEC-2009BI024093

PATIENT
  Age: 43 Year
  Sex: Female
  Weight: 117 kg

DRUGS (3)
  1. TYSABRI [Suspect]
     Indication: MULTIPLE SCLEROSIS
     Route: 042
     Dates: start: 20080122
  2. BACLOFEN [Concomitant]
     Indication: MUSCLE SPASTICITY
  3. TIZANIDINE HCL [Concomitant]
     Indication: MUSCLE SPASTICITY

REACTIONS (2)
  - FALL [None]
  - LOWER LIMB FRACTURE [None]
